FAERS Safety Report 8401594-1 (Version None)
Quarter: 2012Q2

REPORT INFORMATION
  Report Type: 
  Country: None (occurrence: None)
  Receive Date: 20120601
  Receipt Date: 20120521
  Transmission Date: 20120825
  Serious: No
  Sender: FDA-Public Use
  Company Number: US-JNJFOC-20120518143

PATIENT
  Sex: Female
  Weight: 63.5 kg

DRUGS (11)
  1. FENTANYL-100 [Suspect]
     Indication: BACK PAIN
     Route: 062
     Dates: start: 20120517
  2. FENTANYL-100 [Suspect]
     Indication: NECK PAIN
     Route: 062
  3. FENTANYL-100 [Suspect]
     Indication: BACK PAIN
     Route: 062
  4. FENTANYL-100 [Suspect]
     Indication: PELVIC PAIN
     Route: 062
  5. LISINOPRIL [Concomitant]
     Indication: HYPERTENSION
     Route: 048
  6. ADVAIR DISKUS 100/50 [Concomitant]
     Indication: ASTHMA
     Route: 055
  7. VENTOLIN [Concomitant]
     Indication: ASTHMA
     Route: 055
  8. FENTANYL-100 [Suspect]
     Indication: PELVIC PAIN
     Route: 062
     Dates: start: 20120517
  9. OXYCODONE HYDROCHLORIDE [Concomitant]
     Indication: PAIN
     Route: 055
  10. VALIUM [Concomitant]
  11. FENTANYL-100 [Suspect]
     Indication: NECK PAIN
     Route: 062
     Dates: start: 20120517

REACTIONS (4)
  - WRONG TECHNIQUE IN DRUG USAGE PROCESS [None]
  - APPLICATION SITE PRURITUS [None]
  - PRODUCT QUALITY ISSUE [None]
  - APPLICATION SITE RASH [None]
